FAERS Safety Report 15097247 (Version 2)
Quarter: 2020Q4

REPORT INFORMATION
  Report Type: Spontaneous
  Country: PT (occurrence: PT)
  Receive Date: 20180702
  Receipt Date: 20201125
  Transmission Date: 20210113
  Serious: Yes (Death, Hospitalization, Other)
  Sender: FDA-Public Use
  Company Number: PT-SAMSUNG BIOEPIS-SB-2018-08184

PATIENT
  Age: 44 Year
  Sex: Female

DRUGS (5)
  1. INFLIXIMAB [Suspect]
     Active Substance: INFLIXIMAB
     Indication: ANAL ABSCESS
     Dosage: UNKNOWN
     Route: 065
  2. AZATHIOPRINE. [Suspect]
     Active Substance: AZATHIOPRINE
     Indication: CROHN^S DISEASE
     Dosage: UNKNOWN
     Route: 065
  3. INFLIXIMAB [Suspect]
     Active Substance: INFLIXIMAB
     Indication: CROHN^S DISEASE
     Dosage: UNKNOWN?LYOPHILIZED POWDER
     Route: 042
  4. ADALIMUMAB [Suspect]
     Active Substance: ADALIMUMAB
     Indication: CROHN^S DISEASE
     Dosage: UNKNOWN
     Route: 058
  5. MESALAZINE [Suspect]
     Active Substance: MESALAMINE
     Indication: CROHN^S DISEASE
     Dosage: UNKNOWN
     Route: 065

REACTIONS (11)
  - Crohn^s disease [Fatal]
  - Drug ineffective [Unknown]
  - Anal squamous cell carcinoma [Fatal]
  - Disease progression [Fatal]
  - Anal fistula [Unknown]
  - Product use in unapproved indication [Unknown]
  - Malignant transformation [Fatal]
  - Sepsis [Recovered/Resolved]
  - Anal cancer [Unknown]
  - Abscess [Unknown]
  - Papilloma viral infection [Unknown]
